FAERS Safety Report 18194619 (Version 6)
Quarter: 2023Q4

REPORT INFORMATION
  Report Type: Spontaneous
  Country: CA (occurrence: None)
  Receive Date: 20200825
  Receipt Date: 20231207
  Transmission Date: 20240109
  Serious: Yes (Other)
  Sender: FDA-Public Use
  Company Number: 2020SF06767

PATIENT
  Age: 54 Year
  Sex: Male

DRUGS (51)
  1. QUETIAPINE [Suspect]
     Active Substance: QUETIAPINE
     Indication: Bipolar disorder
     Route: 048
  2. QUETIAPINE [Suspect]
     Active Substance: QUETIAPINE
     Indication: Product used for unknown indication
     Route: 048
  3. QUETIAPINE [Suspect]
     Active Substance: QUETIAPINE
     Indication: Bipolar disorder
  4. QUETIAPINE [Suspect]
     Active Substance: QUETIAPINE
     Indication: Product used for unknown indication
  5. ATAZANAVIR SULFATE [Suspect]
     Active Substance: ATAZANAVIR SULFATE
     Indication: HIV infection
     Route: 065
  6. ATAZANAVIR SULFATE [Suspect]
     Active Substance: ATAZANAVIR SULFATE
     Indication: Product used for unknown indication
     Route: 065
  7. ATAZANAVIR [Suspect]
     Active Substance: ATAZANAVIR
     Indication: HIV infection
     Route: 065
  8. BUPROPION [Suspect]
     Active Substance: BUPROPION
     Indication: Bipolar disorder
     Route: 048
  9. BUPROPION [Suspect]
     Active Substance: BUPROPION
     Indication: Product used for unknown indication
     Route: 048
  10. BUPROPION HYDROCHLORIDE [Suspect]
     Active Substance: BUPROPION HYDROCHLORIDE
     Indication: Bipolar disorder
     Route: 048
  11. BUPROPION HYDROCHLORIDE [Suspect]
     Active Substance: BUPROPION HYDROCHLORIDE
     Indication: Bipolar disorder
     Route: 048
  12. BUPROPION HYDROCHLORIDE [Suspect]
     Active Substance: BUPROPION HYDROCHLORIDE
     Indication: Bipolar disorder
     Route: 065
  13. BUPROPION HYDROCHLORIDE [Suspect]
     Active Substance: BUPROPION HYDROCHLORIDE
     Indication: Bipolar disorder
     Route: 065
  14. CLONAZEPAM [Suspect]
     Active Substance: CLONAZEPAM
     Indication: Bipolar disorder
     Route: 048
  15. CLONAZEPAM [Suspect]
     Active Substance: CLONAZEPAM
     Indication: Product used for unknown indication
     Route: 048
  16. CLONAZEPAM [Suspect]
     Active Substance: CLONAZEPAM
     Indication: Bipolar disorder
     Route: 065
  17. CLONAZEPAM [Suspect]
     Active Substance: CLONAZEPAM
     Indication: Product used for unknown indication
     Route: 065
  18. ISENTRESS [Suspect]
     Active Substance: RALTEGRAVIR POTASSIUM
     Indication: HIV infection
     Route: 048
  19. ISENTRESS [Suspect]
     Active Substance: RALTEGRAVIR POTASSIUM
     Indication: HIV infection
     Dosage: RALTEGRAVIR POTASSIUM
     Route: 048
  20. ISENTRESS [Suspect]
     Active Substance: RALTEGRAVIR POTASSIUM
     Indication: HIV infection
     Dosage: RALTEGRAVIR POTASSIUM
     Route: 048
  21. ISENTRESS [Suspect]
     Active Substance: RALTEGRAVIR POTASSIUM
     Indication: HIV infection
     Route: 065
  22. ISENTRESS [Suspect]
     Active Substance: RALTEGRAVIR POTASSIUM
     Indication: HIV infection
     Route: 048
  23. KALETRA [Suspect]
     Active Substance: LOPINAVIR\RITONAVIR
     Indication: HIV infection
     Route: 048
  24. KALETRA [Suspect]
     Active Substance: LOPINAVIR\RITONAVIR
     Indication: Product used for unknown indication
     Route: 048
  25. LAMIVUDINE [Suspect]
     Active Substance: LAMIVUDINE
     Indication: HIV infection
     Route: 065
  26. LAMIVUDINE [Suspect]
     Active Substance: LAMIVUDINE
     Indication: Product used for unknown indication
     Route: 065
  27. SERTRALINE [Suspect]
     Active Substance: SERTRALINE HYDROCHLORIDE
     Indication: Bipolar disorder
     Route: 065
  28. SERTRALINE [Suspect]
     Active Substance: SERTRALINE HYDROCHLORIDE
     Indication: Product used for unknown indication
     Route: 065
  29. SERTRALINE [Suspect]
     Active Substance: SERTRALINE HYDROCHLORIDE
     Indication: Bipolar disorder
     Route: 065
  30. SERTRALINE [Suspect]
     Active Substance: SERTRALINE HYDROCHLORIDE
     Indication: Product used for unknown indication
     Route: 065
  31. SERTRALINE HYDROCHLORIDE [Suspect]
     Active Substance: SERTRALINE HYDROCHLORIDE
     Indication: Bipolar disorder
     Route: 065
  32. SERTRALINE HYDROCHLORIDE [Suspect]
     Active Substance: SERTRALINE HYDROCHLORIDE
     Indication: Product used for unknown indication
     Route: 065
  33. SERTRALINE HYDROCHLORIDE [Suspect]
     Active Substance: SERTRALINE HYDROCHLORIDE
     Indication: Bipolar disorder
     Route: 065
  34. SERTRALINE HYDROCHLORIDE [Suspect]
     Active Substance: SERTRALINE HYDROCHLORIDE
     Indication: Product used for unknown indication
     Route: 065
  35. SUSTIVA [Suspect]
     Active Substance: EFAVIRENZ
     Indication: Product used for unknown indication
     Route: 048
  36. SUSTIVA [Suspect]
     Active Substance: EFAVIRENZ
     Indication: Product used for unknown indication
     Route: 048
  37. SUSTIVA [Suspect]
     Active Substance: EFAVIRENZ
     Indication: Product used for unknown indication
     Route: 048
  38. SUSTIVA [Suspect]
     Active Substance: EFAVIRENZ
     Indication: Product used for unknown indication
     Route: 065
  39. SUSTIVA [Suspect]
     Active Substance: EFAVIRENZ
     Indication: Product used for unknown indication
     Route: 065
  40. VALPROIC ACID [Suspect]
     Active Substance: VALPROIC ACID
     Indication: Bipolar disorder
     Route: 065
  41. VALPROIC ACID [Suspect]
     Active Substance: VALPROIC ACID
     Indication: Product used for unknown indication
     Route: 065
  42. ZOPICLONE [Suspect]
     Active Substance: ZOPICLONE
     Indication: Product used for unknown indication
     Route: 048
  43. ZOPICLONE [Suspect]
     Active Substance: ZOPICLONE
     Indication: Bipolar disorder
     Route: 048
  44. ZOPICLONE [Suspect]
     Active Substance: ZOPICLONE
     Indication: Product used for unknown indication
     Route: 065
  45. ZOPICLONE [Suspect]
     Active Substance: ZOPICLONE
     Indication: Bipolar disorder
     Route: 065
  46. RALTEGRAVIR POTASSIUM [Suspect]
     Active Substance: RALTEGRAVIR POTASSIUM
     Indication: HIV infection
     Route: 048
  47. RALTEGRAVIR POTASSIUM [Suspect]
     Active Substance: RALTEGRAVIR POTASSIUM
     Indication: Product used for unknown indication
     Route: 048
  48. ZOPICLONE [Suspect]
     Active Substance: ZOPICLONE
     Indication: Bipolar disorder
     Route: 065
  49. ZOPICLONE [Suspect]
     Active Substance: ZOPICLONE
     Indication: Product used for unknown indication
     Route: 065
  50. ENFUVIRTIDE [Concomitant]
     Active Substance: ENFUVIRTIDE
     Indication: HIV infection
     Route: 065
  51. ENFUVIRTIDE [Concomitant]
     Active Substance: ENFUVIRTIDE
     Indication: HIV infection
     Route: 058

REACTIONS (2)
  - Drug interaction [Recovered/Resolved]
  - Depression [Recovered/Resolved]
